FAERS Safety Report 13804010 (Version 1)
Quarter: 2017Q3

REPORT INFORMATION
  Report Type: Spontaneous
  Country: US (occurrence: US)
  Receive Date: 20170728
  Receipt Date: 20170728
  Transmission Date: 20171127
  Serious: No
  Sender: FDA-Public Use
  Company Number: US-ABBVIE-17P-163-2045473-00

PATIENT
  Age: 46 Year
  Sex: Female
  Weight: 54 kg

DRUGS (2)
  1. LEVOTHYROXINE. [Suspect]
     Active Substance: LEVOTHYROXINE
     Indication: SUPPLEMENTATION THERAPY
     Dosage: 120 ?G, QD
     Route: 048
     Dates: start: 201703
  2. LEVOGLUTAMIDE [Suspect]
     Active Substance: GLUTAMINE
     Indication: DYSPEPSIA
     Dosage: UNK
     Route: 065
     Dates: end: 201704

REACTIONS (1)
  - Constipation [Recovering/Resolving]

NARRATIVE: CASE EVENT DATE: 201703
